FAERS Safety Report 6891523-4 (Version None)
Quarter: 2010Q3

REPORT INFORMATION
  Report Type: 
  Country: None (occurrence: None)
  Receive Date: 20100731
  Receipt Date: 20071109
  Transmission Date: 20110219
  Serious: No
  Sender: FDA-Public Use
  Company Number: US-PFIZER INC-2006004993

PATIENT
  Sex: Female

DRUGS (4)
  1. NORVASC [Suspect]
     Indication: HYPERTENSION
     Dosage: DAILY  INTERVAL:  EVERY DAY
     Route: 048
  2. DIOVAN HCT [Concomitant]
     Route: 065
  3. TOPROL-XL [Concomitant]
     Route: 065
  4. PREDNISONE [Concomitant]
     Dates: start: 20060401

REACTIONS (7)
  - BLOOD PRESSURE INADEQUATELY CONTROLLED [None]
  - BURNING SENSATION [None]
  - DRUG ADMINISTRATION ERROR [None]
  - FLUSHING [None]
  - INSOMNIA [None]
  - MYALGIA [None]
  - OEDEMA PERIPHERAL [None]
